FAERS Safety Report 10913812 (Version 1)
Quarter: 2015Q1

REPORT INFORMATION
  Report Type: Report from Study
  Country: US (occurrence: US)
  Receive Date: 20150313
  Receipt Date: 20150313
  Transmission Date: 20150721
  Serious: Yes (Other)
  Sender: FDA-Public Use
  Company Number: US-GILEAD-2015-0141397

PATIENT
  Age: 62 Year
  Sex: Male

DRUGS (1)
  1. RANOLAZINE [Suspect]
     Active Substance: RANOLAZINE
     Indication: PRODUCT USED FOR UNKNOWN INDICATION
     Dosage: 500 MG, UNK
     Route: 048

REACTIONS (15)
  - Gout [Unknown]
  - Obesity [Unknown]
  - Neuropathy peripheral [Unknown]
  - Hypercholesterolaemia [Unknown]
  - Hypertension [Unknown]
  - Anxiety [Unknown]
  - Gastrooesophageal reflux disease [Unknown]
  - Hernia [Unknown]
  - Post-traumatic stress disorder [Unknown]
  - Diabetes mellitus [Unknown]
  - Cellulitis [Unknown]
  - Varicose vein [Unknown]
  - Coronary artery disease [Unknown]
  - Rotator cuff syndrome [Unknown]
  - Deafness [Unknown]
